FAERS Safety Report 26064035 (Version 1)
Quarter: 2025Q4

REPORT INFORMATION
  Report Type: Spontaneous
  Country: US (occurrence: US)
  Receive Date: 20251119
  Receipt Date: 20251119
  Transmission Date: 20260117
  Serious: No
  Sender: ALVOGEN
  Company Number: US-ALVOGEN-2025097743

PATIENT
  Sex: Female

DRUGS (4)
  1. TERIPARATIDE [Suspect]
     Active Substance: TERIPARATIDE
     Indication: Osteoporosis
     Dosage: STRENGTH: 250MCG/ML
     Route: 058
     Dates: start: 202503
  2. LIDOCAINE/PRILOCAINE CRM [Concomitant]
     Indication: Product used for unknown indication
  3. OFEV [Concomitant]
     Active Substance: NINTEDANIB
     Indication: Interstitial lung disease
  4. HIZENTRA 20% PFS (4GM TOTAL) [Concomitant]
     Indication: Product used for unknown indication
     Dosage: 20% PFS (4GM TOTAL)

REACTIONS (5)
  - Decreased appetite [Not Recovered/Not Resolved]
  - Illness [Unknown]
  - Infection [Unknown]
  - Diarrhoea [Unknown]
  - Headache [Unknown]

NARRATIVE: CASE EVENT DATE: 20250101
